FAERS Safety Report 11152296 (Version 1)
Quarter: 2015Q2

REPORT INFORMATION
  Report Type: Spontaneous
  Country: US (occurrence: None)
  Receive Date: 20150529
  Receipt Date: 20150529
  Transmission Date: 20150821
  Serious: Yes (Hospitalization)
  Sender: FDA-Public Use
  Company Number: None

PATIENT
  Age: 78 Year
  Sex: Female
  Weight: 51.3 kg

DRUGS (1)
  1. HUMIRA [Suspect]
     Active Substance: ADALIMUMAB
     Indication: PSORIASIS
     Route: 058

REACTIONS (15)
  - Pneumonia [None]
  - Pyrexia [None]
  - Headache [None]
  - Malaise [None]
  - Acute respiratory distress syndrome [None]
  - Fatigue [None]
  - Decreased appetite [None]
  - Hyponatraemia [None]
  - Histoplasmosis [None]
  - Acute kidney injury [None]
  - Asthenia [None]
  - Aspiration [None]
  - Simplex virus test positive [None]
  - Oxygen saturation decreased [None]
  - Hypercalcaemia [None]

NARRATIVE: CASE EVENT DATE: 20150423
